FAERS Safety Report 20684360 (Version 1)
Quarter: 2022Q2

REPORT INFORMATION
  Report Type: Report from Study
  Country: US (occurrence: US)
  Receive Date: 20220407
  Receipt Date: 20220407
  Transmission Date: 20220721
  Serious: Yes (Other)
  Sender: FDA-Public Use
  Company Number: US-UCBSA-2022013694

PATIENT
  Age: 51 Year
  Sex: Male

DRUGS (3)
  1. LEVETIRACETAM [Suspect]
     Active Substance: LEVETIRACETAM
     Indication: Seizure
     Dosage: 2000 MILLIGRAM, 2X/DAY (BID)
  2. VIMPAT [Suspect]
     Active Substance: LACOSAMIDE
     Indication: Product used for unknown indication
     Dosage: UNK
  3. NAYZILAM [Suspect]
     Active Substance: MIDAZOLAM
     Indication: Product used for unknown indication
     Dosage: UNK

REACTIONS (2)
  - Seizure [Not Recovered/Not Resolved]
  - Overdose [Unknown]

NARRATIVE: CASE EVENT DATE: 20220305
